FAERS Safety Report 4592469-7 (Version None)
Quarter: 2005Q1

REPORT INFORMATION
  Report Type: 
  Country: None (occurrence: None)
  Receive Date: 20050222
  Receipt Date: 20050209
  Transmission Date: 20050727
  Serious: Yes (Life-Threatening, Hospitalization, Disabling)
  Sender: FDA-Public Use
  Company Number: F01200500237

PATIENT
  Age: 55 Year
  Sex: Female

DRUGS (4)
  1. OXALIPLATIN - SOLUTION - 85 MG/M2 [Suspect]
     Indication: COLORECTAL CANCER
     Dosage: 85 MG/M2 Q2W - INTRAVENOUS NOS
     Route: 042
  2. FLUOROURACIL [Suspect]
     Dosage: 400 MG/M2 AS BOLUS FOLLOWED BY 600 MG/M2 IV OVER  22 HOURS, ON D1-D2 Q2W - INTRAVENOUS NOS
     Route: 042
  3. LEUCOVORIN CALCIUM [Suspect]
     Dosage: 200 MG/M2 IV OVER 2 HOURS ON D1-D2, Q2W - INTRAVENOUS NOS
     Route: 042
  4. BEVACIZUMAB SOLUTION 10 MG/KG [Suspect]
     Dosage: 10 MG/KG Q2W - INTRAVENOUS NOS
     Route: 042

REACTIONS (17)
  - ABDOMINAL PAIN [None]
  - ACIDOSIS [None]
  - CONSTIPATION [None]
  - DEHYDRATION [None]
  - DISSEMINATED INTRAVASCULAR COAGULATION [None]
  - GASTROINTESTINAL NEOPLASM [None]
  - HERPES ZOSTER [None]
  - HYPOTENSION [None]
  - ILEUS [None]
  - INTESTINAL ISCHAEMIA [None]
  - NAUSEA [None]
  - NEUTROPENIA [None]
  - PLATELET COUNT DECREASED [None]
  - PROCEDURAL COMPLICATION [None]
  - RASH VESICULAR [None]
  - SEPSIS [None]
  - VOMITING [None]
